FAERS Safety Report 8591144 (Version 5)
Quarter: 2016Q1

REPORT INFORMATION
  Report Type: Spontaneous
  Country: US (occurrence: US)
  Receive Date: 20120601
  Receipt Date: 20160309
  Transmission Date: 20160526
  Serious: Yes (Disabling)
  Sender: FDA-Public Use
  Company Number: US-MERCK-1205USA03385

PATIENT
  Sex: Male
  Weight: 78.5 kg

DRUGS (1)
  1. PROPECIA [Suspect]
     Active Substance: FINASTERIDE
     Indication: ALOPECIA
     Dosage: 1 MG, QD
     Route: 048
     Dates: start: 19980225, end: 2004

REACTIONS (7)
  - Injury [Not Recovered/Not Resolved]
  - Cognitive disorder [Not Recovered/Not Resolved]
  - Sexual dysfunction [Not Recovered/Not Resolved]
  - Sperm concentration decreased [Unknown]
  - Loss of libido [Unknown]
  - Dermatitis [Unknown]
  - Animal bite [Unknown]

NARRATIVE: CASE EVENT DATE: 1998
